FAERS Safety Report 9771634 (Version 1)
Quarter: 2013Q4

REPORT INFORMATION
  Report Type: Spontaneous
  Country: US (occurrence: US)
  Receive Date: 20131219
  Receipt Date: 20131219
  Transmission Date: 20140711
  Serious: Yes (Hospitalization)
  Sender: FDA-Public Use
  Company Number: US-BIOGENIDEC-2013BI120083

PATIENT
  Sex: Female

DRUGS (1)
  1. TECFIDERA [Suspect]
     Indication: MULTIPLE SCLEROSIS
     Dates: end: 20131202

REACTIONS (5)
  - Blood pressure increased [Unknown]
  - Malaise [Unknown]
  - Gastrointestinal disorder [Unknown]
  - Blood magnesium decreased [Unknown]
  - Blood potassium decreased [Unknown]
